FAERS Safety Report 9482217 (Version 1)
Quarter: 2013Q3

REPORT INFORMATION
  Report Type: Spontaneous
  Country: CA (occurrence: None)
  Receive Date: 20130328
  Receipt Date: 20130328
  Transmission Date: 20140516
  Serious: Yes (Hospitalization)
  Sender: FDA-Public Use
  Company Number: 1301CAN003618

PATIENT
  Age: 76 Year
  Sex: Male

DRUGS (1)
  1. BCG LIVE [Suspect]

REACTIONS (2)
  - Epididymitis tuberculous [None]
  - Orchitis [None]
